FAERS Safety Report 21874138 (Version 1)
Quarter: 2023Q1

REPORT INFORMATION
  Report Type: Spontaneous
  Country: DK (occurrence: DK)
  Receive Date: 20230117
  Receipt Date: 20230117
  Transmission Date: 20230418
  Serious: Yes (Hospitalization, Other)
  Sender: FDA-Public Use
  Company Number: DK-BRISTOL-MYERS SQUIBB COMPANY-2022-131557

PATIENT
  Age: 73 Year
  Sex: Female

DRUGS (39)
  1. DEXAMETHASONE [Suspect]
     Active Substance: DEXAMETHASONE
     Indication: Product used for unknown indication
     Dosage: 4 TIMES PER WEEK
     Route: 048
     Dates: start: 20200609, end: 20200622
  2. DEXAMETHASONE [Suspect]
     Active Substance: DEXAMETHASONE
     Dosage: 4 TIMES PER WEEK
     Route: 048
     Dates: start: 20200428, end: 20200509
  3. DEXAMETHASONE [Suspect]
     Active Substance: DEXAMETHASONE
     Dosage: DOSEWASNOTADMINISTERED.:RESTPERIOD
     Route: 065
     Dates: start: 20200701, end: 20200713
  4. DEXAMETHASONE [Suspect]
     Active Substance: DEXAMETHASONE
     Dosage: 2 TIMES PER WEEK
     Route: 048
     Dates: start: 20200714, end: 20200728
  5. DEXAMETHASONE [Suspect]
     Active Substance: DEXAMETHASONE
     Dosage: 4 TIMES PER WEEK
     Route: 048
     Dates: start: 20200519, end: 20200530
  6. DEXAMETHASONE [Suspect]
     Active Substance: DEXAMETHASONE
     Dosage: REASON IF DOSE WAS NOT ADMINISTERED.: RESTPERIOD, DOSE NOT ADMINITERED
     Route: 065
     Dates: start: 20200510, end: 20200518
  7. DEXAMETHASONE [Suspect]
     Active Substance: DEXAMETHASONE
     Dosage: DOSEWASNOTADMINISTERED.:RESTPERIOD
     Route: 065
     Dates: start: 20200623, end: 20200630
  8. DEXAMETHASONE [Suspect]
     Active Substance: DEXAMETHASONE
     Dosage: REASON IF DOSE WAS NOT ADMINISTERED.: RESTPERIOD, DOSE NOT ADMINITERED
     Route: 065
     Dates: start: 20200531, end: 20200608
  9. VELCADE [Suspect]
     Active Substance: BORTEZOMIB
     Indication: Product used for unknown indication
     Dosage: 2 TIMES PER WEEK
     Route: 058
     Dates: start: 20200519, end: 20200530
  10. VELCADE [Suspect]
     Active Substance: BORTEZOMIB
     Dosage: DOSE WAS NOT ADMINISTERED.: RESTPERIOD
     Route: 065
     Dates: start: 20200510, end: 20200518
  11. VELCADE [Suspect]
     Active Substance: BORTEZOMIB
     Dosage: DOSE WAS NOT ADMINISTERED.: RESTPERIOD
     Route: 065
     Dates: start: 20200623, end: 20200630
  12. VELCADE [Suspect]
     Active Substance: BORTEZOMIB
     Dosage: 1 TIMES PER WEEK
     Route: 058
     Dates: start: 20200714, end: 20200728
  13. VELCADE [Suspect]
     Active Substance: BORTEZOMIB
     Dosage: 2 TIMES PER WEEK
     Route: 058
     Dates: start: 20200428, end: 20200509
  14. VELCADE [Suspect]
     Active Substance: BORTEZOMIB
     Dosage: DOSE WAS NOT ADMINISTERED.: RESTPERIOD
     Route: 065
     Dates: start: 20200531, end: 20200608
  15. VELCADE [Suspect]
     Active Substance: BORTEZOMIB
     Dosage: 2 TIMES PER WEEK
     Route: 058
     Dates: start: 20200609, end: 20200622
  16. VELCADE [Suspect]
     Active Substance: BORTEZOMIB
     Dosage: DOSE WAS NOT ADMINISTERED.: RESTPERIOD
     Route: 065
     Dates: start: 20200701, end: 20200713
  17. VELCADE [Suspect]
     Active Substance: BORTEZOMIB
     Dosage: DOSE WAS NOT ADMINISTERED.: RESTPERIOD
     Route: 065
     Dates: start: 20200729, end: 20200804
  18. VELCADE [Suspect]
     Active Substance: BORTEZOMIB
     Dosage: 1 TIMES PER WEEK
     Route: 058
     Dates: start: 20200805, end: 20200819
  19. REVLIMID [Suspect]
     Active Substance: LENALIDOMIDE
     Indication: Product used for unknown indication
     Dosage: DOSE WAS NOT ADMINISTERED.: RESTPERIOD
     Route: 065
     Dates: start: 20220203, end: 20220209
  20. REVLIMID [Suspect]
     Active Substance: LENALIDOMIDE
     Dosage: 4 TIMES PER WEEK
     Route: 048
     Dates: start: 20220310, end: 20220331
  21. REVLIMID [Suspect]
     Active Substance: LENALIDOMIDE
     Dosage: DOSE WAS NOT ADMINISTERED .:RESTPERIOD
     Route: 065
     Dates: start: 20200510, end: 20200518
  22. REVLIMID [Suspect]
     Active Substance: LENALIDOMIDE
     Dosage: 4 TIMES PER WEEK
     Route: 048
     Dates: start: 20220113, end: 20220202
  23. REVLIMID [Suspect]
     Active Substance: LENALIDOMIDE
     Dosage: QD
     Route: 048
     Dates: start: 20200609, end: 20200622
  24. REVLIMID [Suspect]
     Active Substance: LENALIDOMIDE
     Dosage: QD
     Route: 048
     Dates: start: 20200428, end: 20200509
  25. REVLIMID [Suspect]
     Active Substance: LENALIDOMIDE
     Dosage: DOSE WAS NOT ADMINISTERED.: RESTPERIOD
     Route: 065
     Dates: start: 20220210, end: 20220303
  26. REVLIMID [Suspect]
     Active Substance: LENALIDOMIDE
     Dosage: DOSE WAS NOT ADMINISTERED.: RESTPERIOD
     Route: 065
     Dates: start: 20220107, end: 20220112
  27. REVLIMID [Suspect]
     Active Substance: LENALIDOMIDE
     Dosage: DOSE WAS NOT ADMINISTERED.: RESTPERIOD
     Route: 065
     Dates: start: 20200729, end: 20200804
  28. REVLIMID [Suspect]
     Active Substance: LENALIDOMIDE
     Dosage: DOSE WAS NOT ADMINISTERED.: RESTPERIOD
     Route: 065
     Dates: start: 20200701, end: 20200713
  29. REVLIMID [Suspect]
     Active Substance: LENALIDOMIDE
     Dosage: QD
     Route: 048
     Dates: start: 20200519, end: 20200530
  30. REVLIMID [Suspect]
     Active Substance: LENALIDOMIDE
     Dosage: DOSE WAS NOT ADMINISTERED.: RESTPERIOD
     Route: 065
     Dates: start: 20200531, end: 20200608
  31. REVLIMID [Suspect]
     Active Substance: LENALIDOMIDE
     Dosage: 4 TIMES PER WEEK
     Route: 048
     Dates: start: 20220210, end: 20220303
  32. REVLIMID [Suspect]
     Active Substance: LENALIDOMIDE
     Dosage: QD
     Route: 048
     Dates: start: 20200805, end: 20200819
  33. REVLIMID [Suspect]
     Active Substance: LENALIDOMIDE
     Dosage: 4 TIMES PER WEEK
     Route: 048
     Dates: start: 20211216, end: 20220106
  34. REVLIMID [Suspect]
     Active Substance: LENALIDOMIDE
     Dosage: DOSE WAS NOT ADMINISTERED.: RESTPERIOD
     Route: 065
     Dates: start: 20220401, end: 20220406
  35. REVLIMID [Suspect]
     Active Substance: LENALIDOMIDE
     Dosage: QD
     Route: 048
     Dates: start: 20200714, end: 20200728
  36. REVLIMID [Suspect]
     Active Substance: LENALIDOMIDE
     Dosage: 4 TIMES PER WEEK
     Route: 048
     Dates: start: 20220407, end: 20220428
  37. REVLIMID [Suspect]
     Active Substance: LENALIDOMIDE
     Dosage: DOSE WAS NOT ADMINISTERED.: RESTPERIOD
     Route: 065
     Dates: start: 20200623, end: 20200630
  38. REVLIMID [Suspect]
     Active Substance: LENALIDOMIDE
     Dosage: DOSE WAS NOT ADMINISTERED.: RESTPERIOD
     Route: 065
     Dates: start: 20220304, end: 20220309
  39. REVLIMID [Suspect]
     Active Substance: LENALIDOMIDE
     Dosage: DOSE WAS NOT ADMINISTERED.: RESTPERIOD
     Route: 065
     Dates: start: 20220429, end: 20220504

REACTIONS (4)
  - Back pain [Recovered/Resolved with Sequelae]
  - Pneumonia [Recovered/Resolved]
  - Humerus fracture [Recovered/Resolved]
  - Pleural effusion [Not Recovered/Not Resolved]

NARRATIVE: CASE EVENT DATE: 20220523
